FAERS Safety Report 10343884 (Version 1)
Quarter: 2014Q3

REPORT INFORMATION
  Report Type: Spontaneous
  Country: US (occurrence: None)
  Receive Date: 20140724
  Receipt Date: 20140724
  Transmission Date: 20150326
  Serious: Yes (Hospitalization)
  Sender: FDA-Public Use
  Company Number: None

PATIENT
  Age: 82 Year
  Sex: Female
  Weight: 65.77 kg

DRUGS (7)
  1. CALCIUM [Concomitant]
     Active Substance: CALCIUM
  2. HYDROCHLOROTHIAZIDE. [Concomitant]
     Active Substance: HYDROCHLOROTHIAZIDE
  3. COQ10 [Concomitant]
     Active Substance: UBIDECARENONE
  4. MACROGUARD [Concomitant]
  5. NITROFURANTOIN MONOHYDRATE/MACROCRYSTALS [Suspect]
     Active Substance: NITROFURANTOIN\NITROFURANTOIN MONOHYDRATE
     Indication: URINARY TRACT INFECTION
     Dosage: 100 MG?90 PILLS?1 CAPSULE BY MOUTH 2X DAILY FOR 7 DAYS, THEN ONE DAILY THEREAFER?BY MOUTH
     Route: 048
     Dates: start: 20140710, end: 20140710
  6. SUPER OMEGA 3 [Concomitant]
  7. MULTIVITAMIN + MINERAL SUPPLEMENT [Concomitant]

REACTIONS (7)
  - Blood pressure decreased [None]
  - Back pain [None]
  - Musculoskeletal pain [None]
  - Dyspnoea [None]
  - Tremor [None]
  - Chest pain [None]
  - Vomiting [None]

NARRATIVE: CASE EVENT DATE: 20140710
